FAERS Safety Report 4279702-6 (Version None)
Quarter: 2004Q1

REPORT INFORMATION
  Report Type: 
  Country: None (occurrence: None)
  Receive Date: 20040123
  Receipt Date: 20040112
  Transmission Date: 20041129
  Serious: Yes (Other)
  Sender: FDA-Public Use
  Company Number: GBWYE510414JAN04

PATIENT
  Age: 81 Year
  Sex: Male

DRUGS (4)
  1. ADVIL [Suspect]
     Indication: POST PROCEDURAL PAIN
     Dosage: 400 MG, ORAL
     Route: 048
     Dates: start: 20031218, end: 20031225
  2. PHENOBARBITAL TAB [Concomitant]
  3. BECOTIDE (BECLOMETASONE DIPROPIONATE) [Concomitant]
  4. ACETAMINOPHEN [Concomitant]

REACTIONS (1)
  - RENAL IMPAIRMENT [None]
